FAERS Safety Report 7111993-6 (Version None)
Quarter: 2010Q4

REPORT INFORMATION
  Report Type: 
  Country: None (occurrence: None)
  Receive Date: 20101119
  Receipt Date: 20101112
  Transmission Date: 20110411
  Serious: Yes (Hospitalization)
  Sender: FDA-Public Use
  Company Number: DE-B.I. PHARMACEUTICALS,INC./RIDGEFIELD-2009-DE-01924DE

PATIENT
  Age: 78 Year
  Sex: Male
  Weight: 79 kg

DRUGS (9)
  1. SPIRIVA [Suspect]
     Indication: CHRONIC OBSTRUCTIVE PULMONARY DISEASE
     Dosage: 18 MCG
     Route: 055
  2. VIANI FORTE [Suspect]
     Indication: CHRONIC OBSTRUCTIVE PULMONARY DISEASE
     Dosage: 100 MCG
     Route: 055
  3. CEFTRIAXONE [Concomitant]
     Indication: PNEUMONIA
     Dosage: 2 G
     Route: 042
     Dates: start: 20081112, end: 20081114
  4. ATARAX [Concomitant]
     Indication: PRURITUS
     Dosage: 25 MG
     Route: 048
     Dates: end: 20081115
  5. BISOHEXAL 10 [Concomitant]
     Indication: HYPERTENSION
     Dosage: 5 MG
     Route: 048
  6. ASPIRIN [Concomitant]
     Indication: PROPHYLAXIS
     Dosage: 100 MG
     Route: 048
  7. ISCOVER [Concomitant]
     Indication: PROPHYLAXIS
     Dosage: 75 MG
     Route: 048
     Dates: end: 20081115
  8. INEGY 10 MG / 20 MG [Concomitant]
     Indication: HYPERCHOLESTEROLAEMIA
     Dosage: 1 ANZ
     Route: 048
  9. ALLOPURINOL [Concomitant]
     Indication: HYPERURICAEMIA
     Dosage: 300 MG
     Route: 048

REACTIONS (1)
  - TACHYARRHYTHMIA [None]
